FAERS Safety Report 10044465 (Version 1)
Quarter: 2014Q1

REPORT INFORMATION
  Report Type: Spontaneous
  Country: US (occurrence: US)
  Receive Date: 20140328
  Receipt Date: 20140328
  Transmission Date: 20141002
  Serious: Yes (Other)
  Sender: FDA-Public Use
  Company Number: US-BAYER-2014-043419

PATIENT
  Age: 82 Year
  Sex: Female

DRUGS (2)
  1. ACETYLSALICYLIC ACID({=100 MG) [Suspect]
     Indication: CORONARY ARTERY DISEASE
  2. IBUPROFEN [Suspect]
     Indication: INFLUENZA LIKE ILLNESS

REACTIONS (3)
  - Melaena [Recovered/Resolved]
  - Anaemia [None]
  - Blood urea nitrogen/creatinine ratio increased [None]
